FAERS Safety Report 4793613-9 (Version None)
Quarter: 2005Q4

REPORT INFORMATION
  Report Type: 
  Country: None (occurrence: None)
  Receive Date: 20051011
  Receipt Date: 20050930
  Transmission Date: 20060501
  Serious: Yes (Death)
  Sender: FDA-Public Use
  Company Number: ES-BOEHRINGER INGELHEIM PHARMACEUTICALS, INC.-2005-ES-00279ES

PATIENT
  Sex: Female

DRUGS (4)
  1. TIPRANAVIR + RITONAVIR CO-ADMIN [Suspect]
     Indication: HIV INFECTION
     Dosage: TIPRANAIVR 1000MG + RITONAVIR 400MG
     Route: 048
     Dates: start: 20050518, end: 20050801
  2. FUZEON [Concomitant]
     Indication: HIV INFECTION
     Route: 058
     Dates: start: 20050518, end: 20050801
  3. EPIVIR [Concomitant]
     Indication: HIV INFECTION
     Route: 048
     Dates: start: 20050518, end: 20050801
  4. VIREAD [Concomitant]
     Indication: HIV INFECTION
     Route: 048
     Dates: start: 20050518, end: 20050801

REACTIONS (5)
  - ASCITES [None]
  - HEPATIC ENCEPHALOPATHY [None]
  - NAUSEA [None]
  - NEPHROTIC SYNDROME [None]
  - VOMITING [None]
